FAERS Safety Report 5979164-4 (Version None)
Quarter: 2008Q4

REPORT INFORMATION
  Report Type: 
  Country: None (occurrence: None)
  Receive Date: 20081204
  Receipt Date: 20080304
  Transmission Date: 20090506
  Serious: No
  Sender: FDA-Public Use
  Company Number: US-ABBOTT-08P-163-0440943-00

PATIENT
  Sex: Male
  Weight: 99.88 kg

DRUGS (3)
  1. TRICOR [Suspect]
     Indication: BLOOD TRIGLYCERIDES INCREASED
     Route: 048
     Dates: start: 20080226, end: 20080301
  2. CETIRIZINE HYDROCHLORIDE [Concomitant]
     Indication: SEASONAL ALLERGY
     Route: 048
  3. METROPOL XL [Concomitant]
     Indication: HYPERTENSION
     Route: 048

REACTIONS (3)
  - ASTHENIA [None]
  - BURNING SENSATION [None]
  - FLATULENCE [None]
